FAERS Safety Report 7610856-7 (Version None)
Quarter: 2011Q3

REPORT INFORMATION
  Report Type: 
  Country: None (occurrence: None)
  Receive Date: 20110715
  Receipt Date: 20110707
  Transmission Date: 20111222
  Serious: Yes (Hospitalization, Other)
  Sender: FDA-Public Use
  Company Number: US-BAYER-200710877BWH

PATIENT
  Age: 44 Year
  Sex: Male
  Weight: 96.9 kg

DRUGS (13)
  1. BEVACIZUMAB [Suspect]
     Indication: NON-SMALL CELL LUNG CANCER
     Dosage: 994 MG (DAILY DOSE), ONCE, INTRAVENOUS
     Route: 042
     Dates: start: 20070302, end: 20070302
  2. VICODIN [Concomitant]
     Indication: PAIN
     Dosage: AS USED DOSE: 5/500 MG
     Route: 048
     Dates: start: 20070304
  3. VICODIN [Concomitant]
     Indication: ARTHRALGIA
  4. HYDROCODONE COMPOUND [Concomitant]
     Indication: COUGH
     Dosage: 45 ML (DAILY DOSE), , ORAL
     Route: 048
     Dates: start: 20070207
  5. CARBOPLATIN [Suspect]
     Indication: NON-SMALL CELL LUNG CANCER
     Dosage: 810 MG (DAILY DOSE), ONCE, INTRAVENOUS
     Route: 042
     Dates: start: 20070302, end: 20070302
  6. DIPHENHYDRAMINE HCL [Concomitant]
     Indication: PREMEDICATION
     Dosage: 50 MG (DAILY DOSE), ONCE, INTRAVENOUS
     Route: 042
     Dates: start: 20070323, end: 20070323
  7. TAXOL [Suspect]
     Indication: NON-SMALL CELL LUNG CANCER
     Dosage: 456 MG (DAILY DOSE), ONCE, INTRAVENOUS
     Route: 042
     Dates: start: 20070302, end: 20070302
  8. TAXOL [Suspect]
     Dosage: 452 MG (DAILY DOSE), ONCE, INTRAVENOUS
     Route: 042
     Dates: start: 20070323, end: 20070323
  9. ONDANSETRON [Concomitant]
     Indication: PREMEDICATION
     Dosage: 8 MG (DAILY DOSE), , INTRAVENOUS
     Route: 042
     Dates: start: 20070323, end: 20070323
  10. SORAFENIB (RAF KINASE INHIBITOR) [Suspect]
     Indication: NON-SMALL CELL LUNG CANCER
     Route: 048
     Dates: start: 20070304, end: 20070315
  11. TYLENOL PM [DIPHENHYDRAMINE HYDROCHLORIDE,PARACETAMOL] [Concomitant]
     Indication: INSOMNIA
     Route: 048
     Dates: start: 20070307
  12. DEXAMETHASONE [Concomitant]
     Indication: PREMEDICATION
     Dosage: 20 MG (DAILY DOSE), ONCE, INTRAVENOUS
     Route: 042
     Dates: start: 20070323, end: 20070323
  13. CIMETIDINE [Concomitant]
     Indication: PREMEDICATION
     Dosage: 300 MG (DAILY DOSE), ONCE, INTRAVENOUS
     Route: 042
     Dates: start: 20070323, end: 20070323

REACTIONS (4)
  - ERYTHEMA MULTIFORME [None]
  - PULMONARY EMBOLISM [None]
  - PNEUMONIA [None]
  - PYREXIA [None]
